FAERS Safety Report 24966179 (Version 3)
Quarter: 2025Q1

REPORT INFORMATION
  Report Type: Report from Study
  Country: CA (occurrence: CA)
  Receive Date: 20250213
  Receipt Date: 20250312
  Transmission Date: 20250409
  Serious: Yes (Death)
  Sender: AMGEN
  Company Number: CA-AMGEN-CANSL2025009826

PATIENT
  Age: 76 Year
  Sex: Male

DRUGS (1)
  1. TARLATAMAB [Suspect]
     Active Substance: TARLATAMAB
     Indication: Small cell lung cancer
     Route: 065
     Dates: start: 20241113, end: 20250110

REACTIONS (9)
  - Disease progression [Fatal]
  - Paraesthesia [Unknown]
  - Pain in extremity [Unknown]
  - Cough [Unknown]
  - Arthralgia [Unknown]
  - Dyspnoea [Unknown]
  - Asthenia [Unknown]
  - Dysphagia [Unknown]
  - Anxiety [Unknown]

NARRATIVE: CASE EVENT DATE: 20250204
